FAERS Safety Report 7399586-7 (Version None)
Quarter: 2011Q2

REPORT INFORMATION
  Report Type: 
  Country: None (occurrence: None)
  Receive Date: 20110407
  Receipt Date: 20101108
  Transmission Date: 20111010
  Serious: Yes (Other)
  Sender: FDA-Public Use
  Company Number: US-BAYER-201029372NA

PATIENT
  Sex: Female
  Weight: 46 kg

DRUGS (6)
  1. YAZ [Suspect]
     Indication: ORAL CONTRACEPTION
     Route: 048
     Dates: start: 20080522, end: 20080929
  2. YAZ [Suspect]
     Indication: PREMENSTRUAL SYNDROME
  3. ANTIDEPRESSANTS [Concomitant]
  4. YASMIN [Suspect]
     Indication: ORAL CONTRACEPTION
  5. HYDROXYZINE [Concomitant]
  6. LEXAPRO [Concomitant]
     Indication: PRODUCT USED FOR UNKNOWN INDICATION
     Route: 048
     Dates: start: 20080723

REACTIONS (6)
  - CEREBROVASCULAR ACCIDENT [None]
  - APHASIA [None]
  - MENTAL DISORDER [None]
  - PARAESTHESIA [None]
  - DEEP VEIN THROMBOSIS [None]
  - PULMONARY EMBOLISM [None]
